FAERS Safety Report 9058569 (Version 1)
Quarter: 2013Q1

REPORT INFORMATION
  Report Type: Spontaneous
  Country: DE (occurrence: DE)
  Receive Date: 20130211
  Receipt Date: 20130211
  Transmission Date: 20140127
  Serious: Yes (Other)
  Sender: FDA-Public Use
  Company Number: PHHY2013DE012565

PATIENT
  Age: 80 Year
  Sex: Male

DRUGS (1)
  1. STARLIX [Suspect]
     Dosage: UNK UKN, UNK

REACTIONS (1)
  - Epilepsy [Unknown]
